FAERS Safety Report 11272939 (Version 1)
Quarter: 2015Q2

REPORT INFORMATION
  Report Type: Spontaneous
  Country: US (occurrence: None)
  Receive Date: 20150625
  Receipt Date: 20150625
  Transmission Date: 20150821
  Serious: No
  Sender: FDA-Public Use
  Company Number: A-US2015-111319

PATIENT
  Age: 70 Year
  Sex: Female

DRUGS (1)
  1. OPSUMIT [Suspect]
     Active Substance: MACITENTAN
     Indication: PULMONARY ARTERIAL HYPERTENSION
     Route: 048

REACTIONS (12)
  - Malaise [None]
  - Rhinorrhoea [None]
  - Peripheral swelling [None]
  - Erythema [None]
  - Nasal congestion [None]
  - Oedema peripheral [None]
  - Pain of skin [None]
  - Muscle spasms [None]
  - Blood potassium decreased [None]
  - Oedema [None]
  - Nasopharyngitis [None]
  - Cough [None]
